FAERS Safety Report 5237153-1 (Version None)
Quarter: 2007Q1

REPORT INFORMATION
  Report Type: 
  Country: None (occurrence: None)
  Receive Date: 20070213
  Receipt Date: 20070207
  Transmission Date: 20070707
  Serious: Yes (Hospitalization)
  Sender: FDA-Public Use
  Company Number: FR-GLAXOSMITHKLINE-B0457402A

PATIENT
  Age: 67 Year
  Sex: Male
  Weight: 74 kg

DRUGS (10)
  1. AUGMENTIN '125' [Suspect]
     Route: 048
     Dates: start: 20060101, end: 20060101
  2. OFLOCET [Concomitant]
     Route: 065
     Dates: start: 20060101, end: 20060101
  3. VFEND [Concomitant]
     Dates: end: 20060101
  4. CORTANCYL [Concomitant]
  5. NEORAL [Concomitant]
  6. CELLCEPT [Concomitant]
  7. AMLOR [Concomitant]
  8. APROVEL [Concomitant]
  9. OMEPRAZOLE [Concomitant]
  10. FOSAMAX [Concomitant]

REACTIONS (4)
  - ALANINE AMINOTRANSFERASE ABNORMAL [None]
  - ASPARTATE AMINOTRANSFERASE ABNORMAL [None]
  - GAMMA-GLUTAMYLTRANSFERASE ABNORMAL [None]
  - LIVER DISORDER [None]
